FAERS Safety Report 9511810 (Version 2)
Quarter: 2013Q4

REPORT INFORMATION
  Report Type: Spontaneous
  Country: US (occurrence: US)
  Receive Date: 20130910
  Receipt Date: 20131008
  Transmission Date: 20140711
  Serious: Yes (Other)
  Sender: FDA-Public Use
  Company Number: US-SANOFI-AVENTIS-2013SA089322

PATIENT
  Age: 60 Year
  Sex: Female
  Weight: 109.7 kg

DRUGS (6)
  1. LANTUS [Suspect]
     Route: 065
  2. PLAVIX [Concomitant]
     Indication: CEREBROVASCULAR ACCIDENT
     Dates: start: 20101025
  3. CLONIDINE [Concomitant]
     Indication: HYPERTENSION
     Dates: start: 201210
  4. AVAPRO [Concomitant]
     Indication: DIABETES MELLITUS
     Dates: start: 201307
  5. COREG [Concomitant]
     Indication: HYPERTENSION
  6. NOVOLOG [Concomitant]
     Indication: DIABETES MELLITUS
     Dates: start: 201102

REACTIONS (1)
  - Cerebrovascular accident [Unknown]
